FAERS Safety Report 17810215 (Version 1)
Quarter: 2020Q2

REPORT INFORMATION
  Report Type: Spontaneous
  Country: JP (occurrence: JP)
  Receive Date: 20200521
  Receipt Date: 20200521
  Transmission Date: 20200714
  Serious: Yes (Death, Other)
  Sender: FDA-Public Use
  Company Number: JP-009507513-2005JPN006160

PATIENT
  Age: 47 Year
  Sex: Male
  Weight: 68 kg

DRUGS (20)
  1. DAIPHEN [Concomitant]
     Active Substance: SULFAMETHOXAZOLE\TRIMETHOPRIM
     Dosage: UNK
  2. SOLU-CORTEF [Concomitant]
     Active Substance: HYDROCORTISONE SODIUM SUCCINATE
     Dosage: DOSE INCREASED
  3. GENTAMICIN SULFATE. [Concomitant]
     Active Substance: GENTAMICIN SULFATE
     Dosage: UNK
  4. FENTANYL. [Concomitant]
     Active Substance: FENTANYL
  5. TEDIZOLID PHOSPHATE. [Suspect]
     Active Substance: TEDIZOLID PHOSPHATE
     Indication: SEPTIC SHOCK
     Dosage: 200 MG, QD
     Route: 042
     Dates: start: 20200129, end: 20200217
  6. ENALAPRIL MALEATE. [Concomitant]
     Active Substance: ENALAPRIL MALEATE
     Dosage: UNK
  7. ELENTAL [Concomitant]
     Active Substance: AMINO ACIDS\CARBOHYDRATES\MINERALS\SOYBEAN OIL\VITAMINS
     Dosage: UNK
  8. SOLU-CORTEF [Concomitant]
     Active Substance: HYDROCORTISONE SODIUM SUCCINATE
     Dosage: UNK
  9. MERCAZOLE [Concomitant]
     Active Substance: CARBIMAZOLE
     Dosage: UNK
  10. DIPRIVAN [Concomitant]
     Active Substance: PROPOFOL
     Dosage: UNK
  11. MEYLON [Concomitant]
     Active Substance: SODIUM BICARBONATE
     Dosage: UNK
  12. ESOMEPRAZOLE. [Concomitant]
     Active Substance: ESOMEPRAZOLE MAGNESIUM
     Dosage: UNK
  13. PHYSIO 140 [Concomitant]
     Active Substance: CALCIUM GLUCONATE\DEXTROSE\MAGNESIUM CHLORIDE\POTASSIUM CHLORIDE\SODIUM ACETATE\SODIUM CHLORIDE\TRISODIUM CITRATE DIHYDRATE
     Dosage: UNK
  14. ESLAX [Concomitant]
     Active Substance: ROCURONIUM BROMIDE
  15. CARVEDILOL. [Concomitant]
     Active Substance: CARVEDILOL
     Dosage: UNK
  16. URSO [Concomitant]
     Active Substance: URSODIOL
     Dosage: UNK
  17. NAFAMOSTAT [Concomitant]
     Active Substance: NAFAMOSTAT
     Dosage: UNK
  18. MEROPENEM. [Concomitant]
     Active Substance: MEROPENEM
     Indication: SEPTIC SHOCK
     Dosage: UNK
  19. FLAGYL [Concomitant]
     Active Substance: METRONIDAZOLE\METRONIDAZOLE HYDROCHLORIDE
     Dosage: UNK
  20. RECOMODULIN [Concomitant]
     Active Substance: THROMBOMODULIN ALFA
     Dosage: UNK

REACTIONS (17)
  - Depressed level of consciousness [Unknown]
  - Blood pressure decreased [Unknown]
  - Coagulation factor decreased [Unknown]
  - Oedema peripheral [Unknown]
  - Pulseless electrical activity [Recovered/Resolved]
  - Ascites [Unknown]
  - Haematochezia [Unknown]
  - Shock haemorrhagic [Unknown]
  - Coagulation test abnormal [Unknown]
  - Diarrhoea [Unknown]
  - Melaena [Unknown]
  - Intestinal ischaemia [Unknown]
  - Platelet count decreased [Fatal]
  - Portal vein thrombosis [Unknown]
  - Hepatic failure [Unknown]
  - Haemorrhagic diathesis [Unknown]
  - Hypoalbuminaemia [Unknown]

NARRATIVE: CASE EVENT DATE: 20200208
